FAERS Safety Report 4587067-5 (Version None)
Quarter: 2005Q1

REPORT INFORMATION
  Report Type: 
  Country: None (occurrence: None)
  Receive Date: 20050218
  Receipt Date: 20050214
  Transmission Date: 20050727
  Serious: Yes (Other)
  Sender: FDA-Public Use
  Company Number: PHNR2005AU00561

PATIENT
  Age: 82 Year
  Sex: Female

DRUGS (4)
  1. MERSYNDOL [Concomitant]
  2. WARFARIN SODIUM [Suspect]
     Dosage: 2 MG, QD
  3. ACETAMINOPHEN W/ CODEINE [Concomitant]
     Indication: PAIN
  4. FAMVIR [Suspect]
     Indication: HERPES ZOSTER
     Dosage: 250 MG, TID
     Route: 048
     Dates: start: 20050201

REACTIONS (2)
  - DRUG INTERACTION [None]
  - INTERNATIONAL NORMALISED RATIO INCREASED [None]
